FAERS Safety Report 9144918 (Version 7)
Quarter: 2013Q3

REPORT INFORMATION
  Report Type: Report from Study
  Country: BE (occurrence: BE)
  Receive Date: 20130307
  Receipt Date: 20130802
  Transmission Date: 20140515
  Serious: Yes (Life-Threatening, Hospitalization, Other)
  Sender: FDA-Public Use
  Company Number: BE-009507513-1303BEL000636

PATIENT
  Age: 52 Year
  Sex: Female

DRUGS (5)
  1. VICTRELIS [Suspect]
     Indication: CHRONIC HEPATITIS C
     Dosage: 800 MG, TID
     Route: 048
     Dates: start: 20121117, end: 20130227
  2. COPEGUS [Suspect]
     Indication: CHRONIC HEPATITIS C
     Dosage: 200 MG, QD
     Route: 048
     Dates: start: 20121019, end: 20130131
  3. COPEGUS [Suspect]
     Dosage: 400 MG, QD
     Route: 048
     Dates: start: 20130201, end: 20130221
  4. PEGASYS [Suspect]
     Indication: CHRONIC HEPATITIS C
     Dosage: 180 MICROGRAM, QW
     Route: 058
     Dates: start: 20121019, end: 20130227
  5. EUTHYROX [Concomitant]
     Indication: THYROID DISORDER
     Dosage: 75 MICROGRAM, QD (0.075MG)
     Route: 048

REACTIONS (7)
  - Thrombotic thrombocytopenic purpura [Recovered/Resolved]
  - Erythema multiforme [Recovered/Resolved]
  - Bronchopneumonia [Recovering/Resolving]
  - Respiratory failure [Recovering/Resolving]
  - Shock [Recovering/Resolving]
  - Epilepsy [Recovering/Resolving]
  - Rash [Recovered/Resolved]
